FAERS Safety Report 10332446 (Version 1)
Quarter: 2014Q3

REPORT INFORMATION
  Report Type: Spontaneous
  Country: US (occurrence: US)
  Receive Date: 20140722
  Receipt Date: 20140722
  Transmission Date: 20150326
  Serious: No
  Sender: FDA-Public Use
  Company Number: US-ASTRAZENECA-2013SE76282

PATIENT
  Age: 56 Year
  Sex: Male

DRUGS (3)
  1. PARNATE [Concomitant]
     Active Substance: TRANYLCYPROMINE SULFATE
     Dosage: UNKNOWN UNK
  2. SEROQUEL XR [Suspect]
     Active Substance: QUETIAPINE FUMARATE
     Indication: BIPOLAR DISORDER
     Dosage: 250-600 MG QD
     Route: 048
     Dates: start: 2006, end: 2013
  3. LITHIUM [Concomitant]
     Active Substance: LITHIUM CARBONATE
     Dosage: UNKNOWN UNK

REACTIONS (2)
  - Gastritis [Unknown]
  - Bronchitis [Unknown]
